FAERS Safety Report 4629484-0 (Version None)
Quarter: 2005Q2

REPORT INFORMATION
  Report Type: 
  Country: None (occurrence: None)
  Receive Date: 20050405
  Receipt Date: 20050323
  Transmission Date: 20051028
  Serious: Yes (Disabling)
  Sender: FDA-Public Use
  Company Number: 2005UW01092

PATIENT
  Age: 37 Year
  Sex: Female
  Weight: 53 kg

DRUGS (3)
  1. ZOLADEX [Suspect]
     Indication: ENDOMETRIOSIS
     Dosage: 3.6 MG SQ
     Dates: start: 20040525, end: 20040601
  2. ZOLADEX [Suspect]
     Indication: ENDOMETRIOSIS
     Dosage: 10.8 MG SQ
     Dates: start: 20040601, end: 20041219
  3. RIVOTRIL [Concomitant]

REACTIONS (11)
  - AMENORRHOEA [None]
  - ARTHRALGIA [None]
  - ASTHENIA [None]
  - BONE PAIN [None]
  - DYSPHONIA [None]
  - HOT FLUSH [None]
  - IMPAIRED WORK ABILITY [None]
  - MOVEMENT DISORDER [None]
  - OSTEOPENIA [None]
  - PARAESTHESIA [None]
  - THERAPY NON-RESPONDER [None]
